FAERS Safety Report 17996361 (Version 3)
Quarter: 2021Q1

REPORT INFORMATION
  Report Type: Report from Study
  Country: DE (occurrence: DE)
  Receive Date: 20200708
  Receipt Date: 20210215
  Transmission Date: 20210419
  Serious: Yes (Death, Hospitalization, Other)
  Sender: FDA-Public Use
  Company Number: DE-EMD SERONO-9173081

PATIENT
  Age: 74 Year
  Sex: Female

DRUGS (1)
  1. REBIF [Suspect]
     Active Substance: INTERFERON BETA-1A
     Indication: MULTIPLE SCLEROSIS
     Route: 058
     Dates: start: 2006, end: 202005

REACTIONS (4)
  - Pemphigoid [Unknown]
  - Autoimmune disorder [Fatal]
  - General physical health deterioration [Unknown]
  - Progressive multiple sclerosis [Unknown]
